FAERS Safety Report 5857587-1 (Version None)
Quarter: 2008Q3

REPORT INFORMATION
  Report Type: 
  Country: None (occurrence: None)
  Receive Date: 20080825
  Receipt Date: 20080825
  Transmission Date: 20090109
  Serious: Yes (Hospitalization)
  Sender: FDA-Public Use
  Company Number: None

PATIENT
  Sex: Male
  Weight: 72.1219 kg

DRUGS (8)
  1. ATACAND [Suspect]
  2. ALLOPURINOL [Suspect]
  3. LIPITOR [Concomitant]
  4. METFORMIN HCL [Concomitant]
  5. GLIPIZIDE [Concomitant]
  6. CARVEDILOL [Concomitant]
  7. PLAVIX [Concomitant]
  8. NITROGLYCERIN [Concomitant]

REACTIONS (8)
  - ASTHENIA [None]
  - CHEST PAIN [None]
  - CULTURE POSITIVE [None]
  - DYSPNOEA [None]
  - HEART RATE INCREASED [None]
  - KLEBSIELLA INFECTION [None]
  - PLEURAL FIBROSIS [None]
  - WHITE BLOOD CELL COUNT INCREASED [None]
